FAERS Safety Report 13948978 (Version 1)
Quarter: 2017Q3

REPORT INFORMATION
  Report Type: Spontaneous
  Country: US (occurrence: US)
  Receive Date: 20170908
  Receipt Date: 20170908
  Transmission Date: 20171128
  Serious: No
  Sender: FDA-Public Use
  Company Number: US-SIGMAPHARM LABORATORIES, LLC-2017SIG00042

PATIENT
  Sex: Male
  Weight: 79.37 kg

DRUGS (10)
  1. AMIODARONE [Concomitant]
     Active Substance: AMIODARONE
  2. ACITRETIN. [Suspect]
     Active Substance: ACITRETIN
     Indication: TRANSIENT ACANTHOLYTIC DERMATOSIS
  3. VENTOLIN [Concomitant]
     Active Substance: ALBUTEROL SULFATE
  4. UNSPECIFIED EYE DROPS [Concomitant]
     Active Substance: UNSPECIFIED INGREDIENT
  5. UNSPECIFIED VITAMINS [Concomitant]
     Active Substance: VITAMINS
  6. LEVOTHYROXINE. [Concomitant]
     Active Substance: LEVOTHYROXINE
  7. SIMVASTATIN. [Concomitant]
     Active Substance: SIMVASTATIN
  8. ACITRETIN. [Suspect]
     Active Substance: ACITRETIN
     Indication: PRURITUS
     Dosage: 25 MG, 1X/DAY
     Route: 048
     Dates: start: 20170517, end: 201706
  9. FLOMAX [Concomitant]
     Active Substance: TAMSULOSIN HYDROCHLORIDE
  10. MEXITIL [Concomitant]
     Active Substance: MEXILETINE HYDROCHLORIDE

REACTIONS (3)
  - Skin discolouration [Recovered/Resolved]
  - Skin exfoliation [Recovering/Resolving]
  - Cold sweat [Not Recovered/Not Resolved]

NARRATIVE: CASE EVENT DATE: 2017
